FAERS Safety Report 8058592-X (Version None)
Quarter: 2012Q1

REPORT INFORMATION
  Report Type: 
  Country: None (occurrence: None)
  Receive Date: 20120120
  Receipt Date: 20120117
  Transmission Date: 20120608
  Serious: Yes (Hospitalization, Disabling)
  Sender: FDA-Public Use
  Company Number: TW-JNJFOC-20120106335

PATIENT
  Sex: Male
  Weight: 78 kg

DRUGS (2)
  1. NEMONOXACIN [Suspect]
     Indication: PNEUMONIA
     Route: 065
     Dates: start: 20111214, end: 20111220
  2. LEVAQUIN [Suspect]
     Indication: PNEUMONIA
     Route: 048
     Dates: start: 20111214, end: 20111220

REACTIONS (4)
  - DEAFNESS NEUROSENSORY [None]
  - COMMUNICATION DISORDER [None]
  - DIZZINESS [None]
  - MOBILITY DECREASED [None]
